FAERS Safety Report 17461080 (Version 1)
Quarter: 2020Q1

REPORT INFORMATION
  Report Type: Spontaneous
  Country: FR (occurrence: FR)
  Receive Date: 20200226
  Receipt Date: 20200226
  Transmission Date: 20200409
  Serious: Yes (Hospitalization)
  Sender: FDA-Public Use
  Company Number: FR-BRISTOL-MYERS SQUIBB COMPANY-BMS-2020-015309

PATIENT
  Age: 86 Year
  Sex: Male

DRUGS (3)
  1. ROCEPHINE [Interacting]
     Active Substance: CEFTRIAXONE SODIUM
     Indication: PNEUMONIA
     Dosage: UNK
     Route: 051
     Dates: start: 20200123, end: 20200127
  2. COUMADINE [Suspect]
     Active Substance: WARFARIN SODIUM
     Indication: ATRIAL FIBRILLATION
     Dosage: UNK
     Route: 048
  3. PYOSTACINE [Interacting]
     Active Substance: PRISTINAMYCIN
     Indication: PNEUMONIA
     Dosage: 3 GRAM PER DAY
     Route: 048
     Dates: start: 20200127, end: 20200202

REACTIONS (2)
  - Drug interaction [Recovered/Resolved]
  - International normalised ratio increased [Recovered/Resolved]

NARRATIVE: CASE EVENT DATE: 20200127
